FAERS Safety Report 7967880-4 (Version None)
Quarter: 2011Q4

REPORT INFORMATION
  Report Type: 
  Country: None (occurrence: None)
  Receive Date: 20111209
  Receipt Date: 20111206
  Transmission Date: 20120403
  Serious: Yes (Other)
  Sender: FDA-Public Use
  Company Number: CH-ROCHE-1019752

PATIENT
  Age: 64 Year
  Sex: Female

DRUGS (6)
  1. PREDNISONE TAB [Concomitant]
     Route: 048
  2. EXFORGE HCT [Concomitant]
     Route: 048
  3. MYCOPHENOLATE MOFETIL (CELLCEPT) [Suspect]
     Indication: LIVER TRANSPLANT
     Route: 048
     Dates: start: 20110301
  4. PANTOPRAZOLE SODIUM [Concomitant]
     Route: 048
  5. ASPIRIN [Concomitant]
     Route: 048
  6. MAGNESIUM SULFATE [Concomitant]
     Route: 048

REACTIONS (2)
  - TREMOR [None]
  - INTERMITTENT CLAUDICATION [None]
